FAERS Safety Report 10618579 (Version 2)
Quarter: 2014Q4

REPORT INFORMATION
  Report Type: Spontaneous
  Country: US (occurrence: None)
  Receive Date: 20141125
  Receipt Date: 20141211
  Transmission Date: 20150529
  Serious: Yes (Hospitalization)
  Sender: FDA-Public Use
  Company Number: 20140748

PATIENT
  Age: 69 Year
  Sex: Male

DRUGS (6)
  1. PHENYTOIN SODIUM. [Suspect]
     Active Substance: PHENYTOIN SODIUM
     Indication: PRODUCT USED FOR UNKNOWN INDICATION
  2. ACETAMINOPHEN. [Concomitant]
     Active Substance: ACETAMINOPHEN
  3. INSULIN GLARGINE [Concomitant]
     Active Substance: INSULIN GLARGINE
  4. ROSUVASTATIN [Concomitant]
     Active Substance: ROSUVASTATIN
  5. INSULIN ASPART [Concomitant]
     Active Substance: INSULIN ASPART
  6. MORPHINE [Concomitant]
     Active Substance: MORPHINE

REACTIONS (5)
  - Mental status changes [None]
  - Toxicity to various agents [None]
  - Somnolence [None]
  - Gait disturbance [None]
  - Hepatic enzyme increased [None]
